FAERS Safety Report 15281791 (Version 1)
Quarter: 2018Q3

REPORT INFORMATION
  Report Type: Report from Study
  Country: US (occurrence: US)
  Receive Date: 20180815
  Receipt Date: 20180815
  Transmission Date: 20181010
  Serious: Yes (Other)
  Sender: FDA-Public Use
  Company Number: US-BIOGEN-2018BI00619346

PATIENT
  Age: 28 Year
  Sex: Female

DRUGS (2)
  1. TECFIDERA [Suspect]
     Active Substance: DIMETHYL FUMARATE
     Indication: MULTIPLE SCLEROSIS
     Route: 065
     Dates: start: 20170224
  2. TYSABRI [Suspect]
     Active Substance: NATALIZUMAB
     Indication: MULTIPLE SCLEROSIS
     Route: 065
     Dates: start: 20170502, end: 20170627

REACTIONS (7)
  - Hepatic enzyme increased [Unknown]
  - Gastric polyps [Unknown]
  - Gastric disorder [Unknown]
  - Renal failure [Unknown]
  - Ischaemic hepatitis [Unknown]
  - Drug interaction [Unknown]
  - Weight decreased [Unknown]

NARRATIVE: CASE EVENT DATE: 201708
